FAERS Safety Report 8022063-7 (Version None)
Quarter: 2011Q4

REPORT INFORMATION
  Report Type: 
  Country: None (occurrence: None)
  Receive Date: 20111123
  Receipt Date: 20110728
  Transmission Date: 20120403
  Serious: No
  Sender: FDA-Public Use
  Company Number: 336012

PATIENT
  Age: 83 Year
  Sex: Female

DRUGS (2)
  1. VICTOZA [Suspect]
     Indication: TYPE 2 DIABETES MELLITUS
     Dosage: 1.8 MG, QD, SUBCUTANEOUS
     Route: 058
  2. LEVEMIR [Concomitant]

REACTIONS (3)
  - ARTHRALGIA [None]
  - DECREASED APPETITE [None]
  - BACK PAIN [None]
